FAERS Safety Report 4427608-1 (Version None)
Quarter: 2004Q3

REPORT INFORMATION
  Report Type: 
  Country: None (occurrence: None)
  Receive Date: 20040816
  Receipt Date: 20040816
  Transmission Date: 20050211
  Serious: Yes (Hospitalization)
  Sender: FDA-Public Use
  Company Number: None

PATIENT
  Age: 41 Year
  Sex: Male
  Weight: 93.441 kg

DRUGS (4)
  1. HALDOL [Suspect]
     Indication: PSYCHOTIC DISORDER
     Dosage: 5 MG IM Q 4H PRN
     Route: 030
     Dates: start: 20040627, end: 20040701
  2. SEROQUEL [Suspect]
     Indication: AGITATION
     Dosage: 200 MG BID
  3. PROTONIX [Concomitant]
  4. DANTROLENE [Concomitant]

REACTIONS (8)
  - AGGRESSION [None]
  - LABILE BLOOD PRESSURE [None]
  - MUSCULOSKELETAL STIFFNESS [None]
  - NEUROLEPTIC MALIGNANT SYNDROME [None]
  - PARANOIA [None]
  - PYREXIA [None]
  - TACHYCARDIA [None]
  - TREATMENT NONCOMPLIANCE [None]
